FAERS Safety Report 4401252-4 (Version None)
Quarter: 2004Q3

REPORT INFORMATION
  Report Type: 
  Country: None (occurrence: None)
  Receive Date: 20040907
  Receipt Date: 20040121
  Transmission Date: 20050211
  Serious: No
  Sender: FDA-Public Use
  Company Number: US-BRISTOL-MYERS SQUIBB COMPANY-12484705

PATIENT
  Age: 67 Year
  Sex: Female
  Weight: 63 kg

DRUGS (5)
  1. COUMADIN [Suspect]
     Indication: ATRIAL FIBRILLATION
     Dosage: 5 MG X 6 DAYS PER WEEK AND 2. 5 MG X 1 DAY PER WEEK.
     Route: 048
     Dates: start: 20031201
  2. PREVACID [Concomitant]
  3. TOPROL-XL [Concomitant]
  4. HYDROCHLOROTHIAZIDE [Concomitant]
  5. K-DUR 10 [Concomitant]

REACTIONS (2)
  - CONTUSION [None]
  - PROTHROMBIN TIME ABNORMAL [None]
